FAERS Safety Report 4640390-8 (Version None)
Quarter: 2005Q2

REPORT INFORMATION
  Report Type: 
  Country: None (occurrence: None)
  Receive Date: 20050419
  Receipt Date: 20050410
  Transmission Date: 20051028
  Serious: Yes (Hospitalization)
  Sender: FDA-Public Use
  Company Number: TAP2005Q00587

PATIENT
  Age: 18 Month
  Sex: Male
  Weight: 9.0719 kg

DRUGS (5)
  1. PREVACID [Suspect]
     Indication: GASTROOESOPHAGEAL REFLUX DISEASE
     Dosage: 15 MG, 1 IN 1 D, PER ORAL
     Route: 048
     Dates: start: 20050102, end: 20050324
  2. PREVACID [Suspect]
     Indication: GASTROOESOPHAGEAL REFLUX DISEASE
     Dosage: 15 MG, 1 IN 1 D, PER ORAL
     Route: 048
     Dates: start: 20050324, end: 20050405
  3. PREVACID [Suspect]
     Indication: GASTROOESOPHAGEAL REFLUX DISEASE
     Dosage: 15 MG, 1 IN 1 D, PER ORAL
     Route: 048
     Dates: start: 20050406, end: 20050411
  4. . [Concomitant]
  5. . [Concomitant]

REACTIONS (3)
  - COLITIS [None]
  - DEHYDRATION [None]
  - PROTEIN-LOSING GASTROENTEROPATHY [None]
